FAERS Safety Report 14039810 (Version 3)
Quarter: 2017Q4

REPORT INFORMATION
  Report Type: Spontaneous
  Country: US (occurrence: US)
  Receive Date: 20171004
  Receipt Date: 20171212
  Transmission Date: 20180321
  Serious: Yes (Other)
  Sender: FDA-Public Use
  Company Number: US-AMGEN-USASP2017145285

PATIENT
  Age: 80 Year
  Sex: Female

DRUGS (5)
  1. PROLIA [Suspect]
     Active Substance: DENOSUMAB
     Indication: OSTEOPOROSIS POSTMENOPAUSAL
     Dosage: 60 MG, UNK
     Route: 058
     Dates: start: 20170712, end: 20170712
  2. VITAMIN D [Concomitant]
     Active Substance: CHOLECALCIFEROL
  3. LEVOXYL [Concomitant]
     Active Substance: LEVOTHYROXINE SODIUM
     Dosage: 100 MUG, QD
  4. CALCIUM [Concomitant]
     Active Substance: CALCIUM
  5. MAGNESIUM [Concomitant]
     Active Substance: MAGNESIUM

REACTIONS (11)
  - Cellulitis [Unknown]
  - Pain in extremity [Recovering/Resolving]
  - Dyspepsia [Unknown]
  - Respiratory tract infection [Unknown]
  - Condition aggravated [Unknown]
  - Back pain [Not Recovered/Not Resolved]
  - Autoimmune disorder [Unknown]
  - Eye disorder [Unknown]
  - Malaise [Unknown]
  - Urinary tract infection [Unknown]
  - Rash [Unknown]

NARRATIVE: CASE EVENT DATE: 2017
